FAERS Safety Report 14969044 (Version 2)
Quarter: 2018Q2

REPORT INFORMATION
  Report Type: Spontaneous
  Country: US (occurrence: US)
  Receive Date: 20180604
  Receipt Date: 20180625
  Transmission Date: 20180711
  Serious: No
  Sender: FDA-Public Use
  Company Number: US-SA-2018SA143872

PATIENT
  Age: 30 Year
  Sex: Male

DRUGS (2)
  1. DUPIXENT [Suspect]
     Active Substance: DUPILUMAB
     Dosage: INJECTION EVERY TWO WEEK AGO
     Dates: start: 20180215
  2. DUPIXENT [Suspect]
     Active Substance: DUPILUMAB
     Indication: DERMATITIS ATOPIC
     Dosage: 300 MG, QOW
     Route: 058
     Dates: start: 2017

REACTIONS (11)
  - Ocular hyperaemia [Unknown]
  - Eye discharge [Unknown]
  - Vision blurred [Not Recovered/Not Resolved]
  - Keratitis [Unknown]
  - Eye irritation [Not Recovered/Not Resolved]
  - Eye swelling [Unknown]
  - Eye pruritus [Not Recovered/Not Resolved]
  - Blepharitis [Unknown]
  - Eye disorder [Unknown]
  - Lacrimation increased [Not Recovered/Not Resolved]
  - Ocular hyperaemia [Not Recovered/Not Resolved]

NARRATIVE: CASE EVENT DATE: 2018
